FAERS Safety Report 6243769-6 (Version None)
Quarter: 2009Q2

REPORT INFORMATION
  Report Type: 
  Country: None (occurrence: None)
  Receive Date: 20090624
  Receipt Date: 20090619
  Transmission Date: 20091009
  Serious: Yes (Death, Hospitalization)
  Sender: FDA-Public Use
  Company Number: US-ABBOTT-09P-163-0580708-00

PATIENT
  Sex: Male

DRUGS (3)
  1. ZEMPLAR [Suspect]
     Indication: RENAL FAILURE CHRONIC
     Route: 048
     Dates: start: 20070101, end: 20090608
  2. PLAVIX [Concomitant]
     Indication: ANTICOAGULANT THERAPY
     Route: 048
     Dates: end: 20090608
  3. ALLOPURINOL [Concomitant]
     Indication: DRUG USE FOR UNKNOWN INDICATION
     Route: 048
     Dates: end: 20090608

REACTIONS (6)
  - ABASIA [None]
  - DEHYDRATION [None]
  - DYSPHAGIA [None]
  - ELECTROLYTE IMBALANCE [None]
  - PNEUMONIA ASPIRATION [None]
  - PSORIASIS [None]
